FAERS Safety Report 9699237 (Version 1)
Quarter: 2013Q4

REPORT INFORMATION
  Report Type: Spontaneous
  Country: US (occurrence: US)
  Receive Date: 20131120
  Receipt Date: 20131120
  Transmission Date: 20140711
  Serious: No
  Sender: FDA-Public Use
  Company Number: US-GILEAD-2008-0015137

PATIENT
  Age: 72 Year
  Sex: Female
  Weight: 68.04 kg

DRUGS (10)
  1. LETAIRIS [Suspect]
     Indication: PULMONARY ARTERIAL HYPERTENSION
     Route: 048
     Dates: start: 20071218
  2. REVATIO [Concomitant]
     Indication: PULMONARY ARTERIAL HYPERTENSION
     Route: 048
  3. NORVASC [Concomitant]
     Indication: ESSENTIAL HYPERTENSION
     Route: 048
  4. LASIX [Concomitant]
     Indication: PULMONARY ARTERIAL HYPERTENSION
     Route: 048
  5. KCL [Concomitant]
     Indication: MINERAL SUPPLEMENTATION
     Route: 048
  6. PROVENTIL [Concomitant]
     Indication: ASTHMA
  7. SINGULAIR [Concomitant]
     Indication: ASTHMA
     Route: 048
  8. NEXIUM [Concomitant]
     Indication: GASTROOESOPHAGEAL REFLUX DISEASE
     Route: 048
  9. NASONEX [Concomitant]
     Indication: RHINITIS ALLERGIC
     Route: 055
  10. OSCAL D [Concomitant]
     Indication: MINERAL SUPPLEMENTATION
     Route: 048

REACTIONS (1)
  - Sinusitis [Not Recovered/Not Resolved]
